FAERS Safety Report 5011785-8 (Version None)
Quarter: 2006Q2

REPORT INFORMATION
  Report Type: 
  Country: None (occurrence: None)
  Receive Date: 20060524
  Receipt Date: 20060524
  Transmission Date: 20061013
  Serious: Yes (Hospitalization)
  Sender: FDA-Public Use
  Company Number: None

PATIENT
  Age: 80 Year
  Sex: Male
  Weight: 56 kg

DRUGS (3)
  1. GABAPENTIN [Suspect]
     Indication: POST HERPETIC NEURALGIA
     Dosage: 300 MG PO TID
     Route: 048
     Dates: start: 20060323, end: 20060327
  2. ACETAMINOPHEN/CODEINE [Concomitant]
  3. FLUOXETINE [Concomitant]

REACTIONS (5)
  - CONFUSIONAL STATE [None]
  - FALL [None]
  - ORAL INTAKE REDUCED [None]
  - SOMNOLENCE [None]
  - STOMACH DISCOMFORT [None]
